FAERS Safety Report 15717968 (Version 1)
Quarter: 2018Q4

REPORT INFORMATION
  Report Type: Spontaneous
  Country: US (occurrence: US)
  Receive Date: 20181213
  Receipt Date: 20181213
  Transmission Date: 20190205
  Serious: No
  Sender: FDA-Public Use
  Company Number: US-SA-2017SA227243

PATIENT
  Age: 53 Year
  Sex: Female
  Weight: 58.96 kg

DRUGS (10)
  1. EPINEPHRINE. [Concomitant]
     Active Substance: EPINEPHRINE
     Indication: ANAPHYLACTIC REACTION
     Dosage: .3 MG,PRN
     Route: 030
     Dates: start: 20170801
  2. PIROXICAM. [Concomitant]
     Active Substance: PIROXICAM
     Dosage: 1 DF,QD
     Route: 048
     Dates: start: 20111108
  3. SYNTHROID [Concomitant]
     Active Substance: LEVOTHYROXINE SODIUM
     Dosage: 1 DF,QD
     Route: 048
     Dates: start: 20120613
  4. ACETYLSALICYLIC ACID [Concomitant]
     Active Substance: ASPIRIN
     Dosage: 1 DF,QD
     Route: 048
     Dates: start: 20111108
  5. FABRAZYME [Suspect]
     Active Substance: AGALSIDASE BETA
     Indication: LIPIDOSIS
     Dosage: 1.01 MG/KG,QOW
     Route: 041
  6. IBUPROFEN. [Concomitant]
     Active Substance: IBUPROFEN
     Indication: PREMEDICATION
     Dosage: 400 MG,UNK
     Route: 048
     Dates: start: 20170801
  7. FABRAZYME [Suspect]
     Active Substance: AGALSIDASE BETA
     Indication: FABRY^S DISEASE
     Dosage: 1.01 MG/KG,QOW
     Route: 041
  8. DIPHENHYDRAMINE. [Concomitant]
     Active Substance: DIPHENHYDRAMINE
     Indication: ANAPHYLACTIC REACTION
     Dosage: 25 MG,PRN
     Route: 048
     Dates: start: 20170801
  9. DIPHENHYDRAMINE. [Concomitant]
     Active Substance: DIPHENHYDRAMINE
     Indication: PREMEDICATION
  10. NORMAL SALINE [Concomitant]
     Active Substance: SODIUM CHLORIDE
     Indication: MEDICATION DILUTION
     Dosage: .9 %,PRN
     Route: 042
     Dates: start: 20170801

REACTIONS (2)
  - Pyrexia [Unknown]
  - Sinusitis [Unknown]

NARRATIVE: CASE EVENT DATE: 20171024
